FAERS Safety Report 8431667 (Version 12)
Quarter: 2016Q2

REPORT INFORMATION
  Report Type: Spontaneous
  Country: US (occurrence: US)
  Receive Date: 20120228
  Receipt Date: 20160404
  Transmission Date: 20160815
  Serious: Yes (Hospitalization, Other)
  Sender: FDA-Public Use
  Company Number: US-009507513-1202USA03876

PATIENT
  Sex: Female
  Weight: 54.89 kg

DRUGS (7)
  1. FOSAMAX [Suspect]
     Active Substance: ALENDRONATE SODIUM
     Indication: OSTEOPOROSIS
     Dosage: 10 MG, QD
     Route: 048
     Dates: start: 199711, end: 200212
  2. VITAMINS (UNSPECIFIED) [Concomitant]
     Active Substance: VITAMINS
     Dosage: 4 DF, TID
     Dates: start: 1998
  3. CALCIUM (UNSPECIFIED) [Concomitant]
     Active Substance: CALCIUM
     Indication: OSTEOPOROSIS
     Dosage: 30 MG, QD
     Dates: start: 1998
  4. MAGNESIUM (UNSPECIFIED) [Concomitant]
     Active Substance: MAGNESIUM
     Dosage: UNK UNK, QD
     Dates: start: 1998
  5. FOSAMAX [Suspect]
     Active Substance: ALENDRONATE SODIUM
     Dosage: 70 MG, QW
     Route: 048
     Dates: start: 20030117, end: 200704
  6. CALCIUM (UNSPECIFIED) [Concomitant]
     Active Substance: CALCIUM
     Dosage: 5 DF, QD
     Dates: start: 1998
  7. CHOLECALCIFEROL [Concomitant]
     Active Substance: CHOLECALCIFEROL
     Dosage: 5000 U, TIW
     Dates: start: 1998

REACTIONS (48)
  - Pelvic fracture [Unknown]
  - Tibia fracture [Unknown]
  - Spinal compression fracture [Unknown]
  - Bone loss [Unknown]
  - Limb asymmetry [Unknown]
  - Rib fracture [Unknown]
  - Patella fracture [Unknown]
  - Spinal compression fracture [Unknown]
  - Spinal compression fracture [Unknown]
  - Bone density decreased [Unknown]
  - Bone density decreased [Unknown]
  - Musculoskeletal chest pain [Unknown]
  - Fall [Unknown]
  - Vitamin D deficiency [Unknown]
  - Depression [Unknown]
  - Fall [Unknown]
  - Rib fracture [Unknown]
  - Post-traumatic stress disorder [Unknown]
  - Fall [Unknown]
  - Anal incontinence [Unknown]
  - Joint contracture [Unknown]
  - Fracture treatment [Not Recovered/Not Resolved]
  - Rib fracture [Unknown]
  - Radius fracture [Unknown]
  - Femur fracture [Unknown]
  - Kyphosis [Unknown]
  - Spinal compression fracture [Unknown]
  - Sciatica [Unknown]
  - Rib fracture [Unknown]
  - Fibula fracture [Unknown]
  - Hand fracture [Unknown]
  - Osteonecrosis of jaw [Unknown]
  - Spinal osteoarthritis [Unknown]
  - Tooth disorder [Unknown]
  - Tarsal tunnel syndrome [Unknown]
  - Thoracic vertebral fracture [Unknown]
  - Tooth fracture [Unknown]
  - Anaemia [Unknown]
  - Anxiety [Unknown]
  - Body height decreased [Unknown]
  - Gingivitis [Unknown]
  - Ulna fracture [Unknown]
  - Memory impairment [Unknown]
  - Neuroma [Unknown]
  - Fracture [Unknown]
  - Varicose vein [Unknown]
  - Spinal fracture [Unknown]
  - Hand fracture [Unknown]

NARRATIVE: CASE EVENT DATE: 2003
